FAERS Safety Report 12816945 (Version 2)
Quarter: 2016Q4

REPORT INFORMATION
  Report Type: Spontaneous
  Country: JP (occurrence: JP)
  Receive Date: 20161006
  Receipt Date: 20161026
  Transmission Date: 20170207
  Serious: Yes (Other)
  Sender: FDA-Public Use
  Company Number: JP-EMD SERONO-8109919

PATIENT

DRUGS (4)
  1. SEROPHENE [Suspect]
     Active Substance: CLOMIPHENE CITRATE
     Indication: POLYCYSTIC OVARIES
     Route: 064
  2. FERROMIA [Concomitant]
     Active Substance: FERROUS CITRATE
     Indication: PRODUCT USED FOR UNKNOWN INDICATION
     Route: 064
  3. URIC [Concomitant]
     Indication: PRODUCT USED FOR UNKNOWN INDICATION
     Dosage: 3DF/DAY(AFTER BREAKFAST 2DF,AFTER DINNER1DF)
     Route: 064
  4. URINMET [Concomitant]
     Indication: PRODUCT USED FOR UNKNOWN INDICATION
     Route: 064

REACTIONS (1)
  - Foetal growth restriction [Unknown]
